FAERS Safety Report 10730412 (Version 2)
Quarter: 2015Q3

REPORT INFORMATION
  Report Type: Spontaneous
  Country: US (occurrence: US)
  Receive Date: 20150122
  Receipt Date: 20150712
  Transmission Date: 20151125
  Serious: Yes (Hospitalization, Other)
  Sender: FDA-Public Use
  Company Number: US-JNJFOC-20150110951

PATIENT
  Age: 69 Year
  Sex: Male
  Weight: 111.13 kg

DRUGS (10)
  1. CARVEDILOL. [Concomitant]
     Active Substance: CARVEDILOL
     Route: 048
  2. PACERONE [Concomitant]
     Active Substance: AMIODARONE HYDROCHLORIDE
  3. SUCRALFATE. [Concomitant]
     Active Substance: SUCRALFATE
  4. SPIRONOLACTONE. [Concomitant]
     Active Substance: SPIRONOLACTONE
  5. AMIODARONE [Concomitant]
     Active Substance: AMIODARONE
     Indication: HEART RATE INCREASED
  6. XARELTO [Suspect]
     Active Substance: RIVAROXABAN
     Indication: ATRIAL FIBRILLATION
     Route: 048
     Dates: start: 20120607, end: 20130601
  7. XARELTO [Suspect]
     Active Substance: RIVAROXABAN
     Indication: CEREBROVASCULAR ACCIDENT PROPHYLAXIS
     Route: 048
     Dates: start: 20120607, end: 20130601
  8. PACERONE [Concomitant]
     Active Substance: AMIODARONE HYDROCHLORIDE
  9. OMEPRAZOLE. [Concomitant]
     Active Substance: OMEPRAZOLE
  10. LOVASTATIN. [Concomitant]
     Active Substance: LOVASTATIN
     Route: 048

REACTIONS (5)
  - Gastrointestinal haemorrhage [Unknown]
  - Haematochezia [Unknown]
  - Gastric antral vascular ectasia [Unknown]
  - Anaemia [Unknown]
  - Melaena [Unknown]

NARRATIVE: CASE EVENT DATE: 20130201
